FAERS Safety Report 11766981 (Version 1)
Quarter: 2015Q4

REPORT INFORMATION
  Report Type: Spontaneous
  Country: US (occurrence: None)
  Receive Date: 20151120
  Receipt Date: 20151120
  Transmission Date: 20160304
  Serious: Yes (Other)
  Sender: FDA-Public Use
  Company Number: None

PATIENT
  Age: 58 Year
  Sex: Female

DRUGS (1)
  1. IBRANCE [Suspect]
     Active Substance: PALBOCICLIB
     Indication: BREAST CANCER
     Dosage: 125 MG QD FOR 21 DAYS BY MOUTH
     Route: 048
     Dates: start: 20151027, end: 20151116

REACTIONS (1)
  - Neutropenia [None]

NARRATIVE: CASE EVENT DATE: 20151119
